FAERS Safety Report 4583923-2 (Version None)
Quarter: 2005Q1

REPORT INFORMATION
  Report Type: 
  Country: None (occurrence: None)
  Receive Date: 20050216
  Receipt Date: 20041129
  Transmission Date: 20050727
  Serious: No
  Sender: FDA-Public Use
  Company Number: US-GLAXOSMITHKLINE-A0535373A

PATIENT
  Age: 81 Year
  Sex: Male

DRUGS (3)
  1. AVODART [Suspect]
     Indication: BENIGN PROSTATIC HYPERPLASIA
     Dosage: 1CAP PER DAY
     Route: 048
     Dates: start: 20030801, end: 20041025
  2. OCUVITE [Concomitant]
     Route: 065
  3. ZEBETA [Concomitant]

REACTIONS (3)
  - BREAST TENDERNESS [None]
  - HYPERTROPHY BREAST [None]
  - THERAPEUTIC RESPONSE UNEXPECTED [None]
